FAERS Safety Report 7099818-9 (Version None)
Quarter: 2010Q4

REPORT INFORMATION
  Report Type: 
  Country: None (occurrence: None)
  Receive Date: 20101112
  Receipt Date: 20101101
  Transmission Date: 20110411
  Serious: Yes (Other)
  Sender: FDA-Public Use
  Company Number: IL-ELI_LILLY_AND_COMPANY-IL201011000792

PATIENT
  Age: 54 Year
  Sex: Male

DRUGS (2)
  1. BYETTA [Suspect]
     Dosage: 5 UG, 2/D
     Route: 058
  2. BYETTA [Suspect]
     Dosage: 10 UG, 2/D
     Route: 058

REACTIONS (4)
  - BLOOD GLUCOSE INCREASED [None]
  - CARDIAC SEPTAL DEFECT [None]
  - MALAISE [None]
  - SUPRAVENTRICULAR TACHYCARDIA [None]
